FAERS Safety Report 18070076 (Version 1)
Quarter: 2020Q3

REPORT INFORMATION
  Report Type: Spontaneous
  Country: US (occurrence: US)
  Receive Date: 20200727
  Receipt Date: 20200727
  Transmission Date: 20201103
  Serious: Yes (Other)
  Sender: FDA-Public Use
  Company Number: US-LUPIN PHARMACEUTICALS INC.-2020-03794

PATIENT
  Age: 81 Year
  Sex: Male

DRUGS (2)
  1. HYDROMORPHONE [Interacting]
     Active Substance: HYDROMORPHONE
     Indication: PAIN
     Dosage: LOW DOSES, PRN
     Route: 042
  2. ZOLPIDEM [Suspect]
     Active Substance: ZOLPIDEM TARTRATE
     Indication: INSOMNIA
     Dosage: UNK UNK, QD (EVERY NIGHT)
     Route: 065

REACTIONS (3)
  - Depressed level of consciousness [Unknown]
  - Drug interaction [Unknown]
  - Acute respiratory failure [Unknown]
